FAERS Safety Report 4885451-3 (Version None)
Quarter: 2005Q4

REPORT INFORMATION
  Report Type: 
  Country: None (occurrence: None)
  Receive Date: 20051220
  Receipt Date: 20050418
  Transmission Date: 20060501
  Serious: Yes (Hospitalization)
  Sender: FDA-Public Use
  Company Number: HQWYE111219APR05

PATIENT
  Age: 38 Year
  Sex: Female

DRUGS (5)
  1. EFFEXOR XR [Suspect]
     Indication: DEPRESSION
     Dosage: ORAL; 300 MG, ORAL
     Route: 048
     Dates: end: 20050101
  2. EFFEXOR XR [Suspect]
     Indication: DEPRESSION
     Dosage: ORAL; 300 MG, ORAL
     Route: 048
     Dates: start: 20050101, end: 20050301
  3. PAXIL CR [Suspect]
     Indication: DEPRESSION
     Dosage: 37.5 MG 1X PER 1 DAY, ORAL
     Route: 048
     Dates: start: 20010101, end: 20050301
  4. PROVIGIL [Concomitant]
  5. KLONOPIN [Concomitant]

REACTIONS (13)
  - CONDITION AGGRAVATED [None]
  - DEPRESSION [None]
  - DIZZINESS [None]
  - DRUG WITHDRAWAL SYNDROME [None]
  - FEELING HOT [None]
  - MALAISE [None]
  - MEMORY IMPAIRMENT [None]
  - MIGRAINE [None]
  - NAUSEA [None]
  - NIGHT SWEATS [None]
  - PRURITUS [None]
  - THIRST [None]
  - VOMITING [None]
